FAERS Safety Report 17237935 (Version 1)
Quarter: 2020Q1

REPORT INFORMATION
  Report Type: Spontaneous
  Country: US (occurrence: US)
  Receive Date: 20200106
  Receipt Date: 20200106
  Transmission Date: 20200409
  Serious: No
  Sender: FDA-Public Use
  Company Number: US-PACIRA-201800013

PATIENT

DRUGS (2)
  1. EXPAREL [Suspect]
     Active Substance: BUPIVACAINE
     Indication: PROCEDURAL PAIN
     Dosage: UNK UNK, UNK, FREQUENCY : UNK
  2. BUPIVACAINE. [Suspect]
     Active Substance: BUPIVACAINE
     Indication: PROCEDURAL PAIN
     Dosage: UNK UNK, UNK, FREQUENCY : UNK

REACTIONS (7)
  - Hypoventilation [Recovered/Resolved]
  - Vision blurred [Recovered/Resolved]
  - Agitation [Unknown]
  - Oxygen saturation decreased [Recovered/Resolved]
  - Somnolence [Recovered/Resolved]
  - Product administered to patient of inappropriate age [Unknown]
  - Tachycardia [Recovered/Resolved]
